FAERS Safety Report 7726077-3 (Version None)
Quarter: 2011Q3

REPORT INFORMATION
  Report Type: 
  Country: None (occurrence: None)
  Receive Date: 20110831
  Receipt Date: 20110817
  Transmission Date: 20111222
  Serious: Yes (Other)
  Sender: FDA-Public Use
  Company Number: 2011AT000312

PATIENT
  Age: 72 Year
  Sex: Male

DRUGS (6)
  1. LERCANIDIPINE [Suspect]
     Indication: CORONARY ARTERY STENOSIS
  2. ALPROSTADIL [Suspect]
     Indication: ERECTILE DYSFUNCTION
     Dosage: 5 UG, ICAN
  3. IRBESARTAN [Suspect]
     Indication: CORONARY ARTERY STENOSIS
  4. ASPIRIN [Concomitant]
  5. ATORVASTATIN [Concomitant]
  6. BYSTOLIC [Suspect]
     Indication: CORONARY ARTERY STENOSIS

REACTIONS (8)
  - TROPONIN INCREASED [None]
  - HEART RATE INCREASED [None]
  - BLOOD PRESSURE INCREASED [None]
  - SYNCOPE [None]
  - MYOCARDIAL ISCHAEMIA [None]
  - RESPIRATORY RATE INCREASED [None]
  - BLOOD CREATINE PHOSPHOKINASE INCREASED [None]
  - ELECTROCARDIOGRAM ST SEGMENT DEPRESSION [None]
